FAERS Safety Report 8357887-X (Version None)
Quarter: 2012Q2

REPORT INFORMATION
  Report Type: 
  Country: None (occurrence: None)
  Receive Date: 20120511
  Receipt Date: 20120430
  Transmission Date: 20120825
  Serious: Yes (Other)
  Sender: FDA-Public Use
  Company Number: AUR-APL-2012-02041

PATIENT
  Age: 25 Year
  Sex: Female

DRUGS (5)
  1. PEGASYS [Suspect]
     Indication: PRODUCT USED FOR UNKNOWN INDICATION
  2. MACROBID [Concomitant]
  3. PRENATAL VITAMINS (PRENATAL VITAMINS /01549301/) [Suspect]
  4. RIBAVIRIN [Suspect]
     Indication: PRODUCT USED FOR UNKNOWN INDICATION
     Dosage: (1200 MG, 1 D),ORAL
     Route: 048
     Dates: start: 20110802, end: 20120105
  5. METHADONE HCL [Concomitant]

REACTIONS (3)
  - MATERNAL EXPOSURE DURING PREGNANCY [None]
  - PREGNANCY [None]
  - URINARY TRACT INFECTION [None]
